FAERS Safety Report 16707383 (Version 1)
Quarter: 2019Q3

REPORT INFORMATION
  Report Type: Spontaneous
  Country: JP (occurrence: JP)
  Receive Date: 20190815
  Receipt Date: 20190815
  Transmission Date: 20191004
  Serious: Yes (Hospitalization)
  Sender: FDA-Public Use
  Company Number: JP-ALLERGAN-1933029US

PATIENT
  Sex: Female
  Weight: 76.35 kg

DRUGS (7)
  1. DINAGEST [Suspect]
     Active Substance: DIENOGEST
     Indication: UTERINE LEIOMYOMA
     Dosage: 1 MG, Q12H
     Route: 048
     Dates: start: 20181001, end: 20190612
  2. ESCITALOPRAM OXALATE - BP [Suspect]
     Active Substance: ESCITALOPRAM OXALATE
     Indication: SYSTEMIC LUPUS ERYTHEMATOSUS
     Dosage: 10 MG, QD
     Route: 048
     Dates: start: 20161102
  3. LAMICTAL [Concomitant]
     Active Substance: LAMOTRIGINE
     Indication: SYSTEMIC LUPUS ERYTHEMATOSUS
     Dosage: 150 MG, Q12H
     Route: 048
     Dates: start: 20161102
  4. E KEPPRA [Concomitant]
     Active Substance: LEVETIRACETAM
     Indication: EPILEPSY
     Dosage: 500 MG, Q12H
     Route: 048
     Dates: start: 20171004
  5. LEUPRORELIN [Concomitant]
     Active Substance: LEUPROLIDE ACETATE
     Dosage: 1.88 MG
     Dates: start: 20180411, end: 20180906
  6. BAYASPIRIN [Suspect]
     Active Substance: ASPIRIN
     Indication: SYSTEMIC LUPUS ERYTHEMATOSUS
     Dosage: 100 MG, QD
     Route: 048
     Dates: start: 20070615
  7. DINAGEST [Suspect]
     Active Substance: DIENOGEST
     Dosage: 1 MG, BID
     Route: 048
     Dates: start: 20170906, end: 20180125

REACTIONS (4)
  - Labelled drug-disease interaction medication error [Unknown]
  - Anaemia [Recovered/Resolved]
  - Product use in unapproved indication [Unknown]
  - Metrorrhagia [Recovered/Resolved]

NARRATIVE: CASE EVENT DATE: 20190611
